FAERS Safety Report 21096399 (Version 16)
Quarter: 2022Q4

REPORT INFORMATION
  Report Type: Spontaneous
  Country: HN (occurrence: HN)
  Receive Date: 20220718
  Receipt Date: 20221114
  Transmission Date: 20230112
  Serious: No
  Sender: FDA-Public Use
  Company Number: HN-PFIZER INC-PV202200014086

PATIENT
  Age: 11 Year
  Sex: Male

DRUGS (4)
  1. GENOTROPIN [Suspect]
     Active Substance: SOMATROPIN
     Dosage: 0.9 MG, 1X/DAY
  2. GENOTROPIN [Suspect]
     Active Substance: SOMATROPIN
     Dosage: 0.9 MG, DAILY
     Dates: start: 20220622, end: 2022
  3. GENOTROPIN [Suspect]
     Active Substance: SOMATROPIN
     Dosage: 0.5 MG, DAILY (AT NIGHT)
     Dates: start: 2022, end: 2022
  4. GENOTROPIN [Suspect]
     Active Substance: SOMATROPIN
     Dosage: 0.9 MG, 1X/DAY
     Dates: start: 20220623, end: 2022

REACTIONS (6)
  - Device loosening [Unknown]
  - Drug dose omission by device [Unknown]
  - Device calibration failure [Unknown]
  - Device leakage [Unknown]
  - Device information output issue [Unknown]
  - Product dose omission issue [Unknown]

NARRATIVE: CASE EVENT DATE: 20220629
